FAERS Safety Report 21266428 (Version 1)
Quarter: 2022Q3

REPORT INFORMATION
  Report Type: Spontaneous
  Country: US (occurrence: None)
  Receive Date: 20220829
  Receipt Date: 20220829
  Transmission Date: 20221027
  Serious: Yes (unspecified)
  Sender: FDA-Public Use
  Company Number: None

PATIENT
  Age: 30 Year
  Sex: Female
  Weight: 64.9 kg

DRUGS (3)
  1. OCREVUS [Suspect]
     Active Substance: OCRELIZUMAB
     Indication: Multiple sclerosis
     Dosage: FREQUENCY : ONCE;?
     Route: 041
     Dates: start: 20220825, end: 20220825
  2. Diphenhydramine 25 mg IVP [Concomitant]
     Dates: start: 20220825, end: 20220825
  3. Hydrocortisone 100 mg IVP [Concomitant]
     Dates: start: 20220825, end: 20220825

REACTIONS (3)
  - Infusion related reaction [None]
  - Throat irritation [None]
  - Chest discomfort [None]

NARRATIVE: CASE EVENT DATE: 20220825
